FAERS Safety Report 9061850 (Version 1)
Quarter: 2013Q1

REPORT INFORMATION
  Report Type: Spontaneous
  Country: US (occurrence: None)
  Receive Date: 20130118
  Receipt Date: 20130118
  Transmission Date: 20140127
  Serious: Yes (Death, Other)
  Sender: FDA-Public Use
  Company Number: 2013MA000215

PATIENT
  Age: 62 Year
  Sex: Female

DRUGS (6)
  1. KADIAN [Suspect]
     Indication: PRODUCT USED FOR UNKNOWN INDICATION
     Route: 048
  2. CODEINE [Suspect]
     Route: 048
  3. CHLORDIAZEPOXIDE [Suspect]
     Route: 048
  4. DESIPRAMINE HYDROCHLORIDE [Suspect]
     Route: 048
  5. LAXATIVE (STIMULANT) [Suspect]
     Route: 048
  6. IBUPROFEN [Suspect]
     Route: 048

REACTIONS (1)
  - Completed suicide [None]
